FAERS Safety Report 9767274 (Version 1)
Quarter: 2013Q4

REPORT INFORMATION
  Report Type: Spontaneous
  Country: US (occurrence: US)
  Receive Date: 20131217
  Receipt Date: 20131217
  Transmission Date: 20140711
  Serious: Yes (Other)
  Sender: FDA-Public Use
  Company Number: US-JNJFOC-20131205643

PATIENT
  Sex: Female
  Weight: 55.79 kg

DRUGS (8)
  1. XARELTO [Suspect]
     Indication: CEREBROVASCULAR ACCIDENT PROPHYLAXIS
     Route: 048
  2. XARELTO [Suspect]
     Indication: CEREBROVASCULAR ACCIDENT PROPHYLAXIS
     Route: 048
     Dates: start: 201306
  3. XARELTO [Suspect]
     Indication: ATRIAL FIBRILLATION
     Route: 048
  4. XARELTO [Suspect]
     Indication: ATRIAL FIBRILLATION
     Route: 048
     Dates: start: 201306
  5. LIDOCAINE [Suspect]
     Indication: ANAESTHESIA
     Route: 065
  6. SYNTHROID [Concomitant]
     Indication: THYROIDECTOMY
     Route: 048
  7. SYNTHROID [Concomitant]
     Indication: THYROIDECTOMY
     Route: 048
  8. DIGOXIN [Concomitant]
     Indication: ATRIAL FIBRILLATION
     Route: 048

REACTIONS (7)
  - Paralysis [Recovered/Resolved]
  - Squamous cell carcinoma [Not Recovered/Not Resolved]
  - Atrial fibrillation [Unknown]
  - Fatigue [Not Recovered/Not Resolved]
  - Stress [Not Recovered/Not Resolved]
  - Drug dose omission [Recovered/Resolved]
  - Sleep disorder [Not Recovered/Not Resolved]
